FAERS Safety Report 17006327 (Version 2)
Quarter: 2019Q4

REPORT INFORMATION
  Report Type: Spontaneous
  Country: US (occurrence: US)
  Receive Date: 20191107
  Receipt Date: 20191121
  Transmission Date: 20200122
  Serious: Yes (Other)
  Sender: FDA-Public Use
  Company Number: US-TEVA-2019-US-1132118

PATIENT
  Age: 69 Year
  Sex: Male

DRUGS (8)
  1. OXALIPLATIN. [Suspect]
     Active Substance: OXALIPLATIN
     Dosage: OVER 2 HOURS
     Route: 042
  2. FLUOROURACIL. [Suspect]
     Active Substance: FLUOROURACIL
     Dosage: IN CYCLE 3, 1,200 MG/M2/CYCLE IV INFUSION ADMINISTERED OVER 46 HOURS
     Route: 041
  3. OXALIPLATIN. [Suspect]
     Active Substance: OXALIPLATIN
     Indication: ADENOCARCINOMA OF COLON
     Dosage: OVER 2 HOURS
     Route: 042
  4. ISOSORBIDE DINITRATE. [Concomitant]
     Active Substance: ISOSORBIDE DINITRATE
     Indication: PROPHYLAXIS
     Route: 065
  5. FLUOROURACIL. [Suspect]
     Active Substance: FLUOROURACIL
     Indication: ADENOCARCINOMA OF COLON
     Dosage: 1,200 MG/M2/DAY CONTINUOUS INFUSION OVER 23 HOURS FOR TWO DOSES (TOTAL OF 2,400 MG/M2/CYCLE)
     Route: 041
  6. FLUOROURACIL. [Suspect]
     Active Substance: FLUOROURACIL
     Dosage: IN CYCLE 4, 1,800 MG/M2/CYCLE IV INFUSION ADMINISTERED OVER 46 HOURS
     Route: 041
  7. NIFEDIPINE. [Concomitant]
     Active Substance: NIFEDIPINE
     Indication: PROPHYLAXIS
     Dosage: EXTENDED RELEASE
     Route: 048
  8. LEUCOVORIN. [Concomitant]
     Active Substance: LEUCOVORIN
     Indication: ADENOCARCINOMA OF COLON
     Dosage: OVER 2 HOURS
     Route: 042

REACTIONS (3)
  - Drug hypersensitivity [Unknown]
  - Arteriospasm coronary [Unknown]
  - Neutropenia [Unknown]
